FAERS Safety Report 9404578 (Version 1)
Quarter: 2013Q3

REPORT INFORMATION
  Report Type: Spontaneous
  Country: GB (occurrence: GB)
  Receive Date: 20130717
  Receipt Date: 20130717
  Transmission Date: 20140515
  Serious: Yes (Other)
  Sender: FDA-Public Use
  Company Number: GB-AMGEN-GBRSP2013049215

PATIENT
  Sex: Female

DRUGS (2)
  1. ENBREL [Suspect]
     Indication: RHEUMATOID ARTHRITIS
     Dosage: 50 MG, WEEKLY
     Route: 058
  2. HUMIRA [Suspect]
     Dosage: UNK
     Route: 065
     Dates: end: 201302

REACTIONS (3)
  - Malaise [Unknown]
  - Headache [Unknown]
  - Dizziness [Unknown]
